FAERS Safety Report 13273945 (Version 1)
Quarter: 2017Q1

REPORT INFORMATION
  Report Type: Spontaneous
  Country: CN (occurrence: CN)
  Receive Date: 20170227
  Receipt Date: 20170227
  Transmission Date: 20170428
  Serious: Yes (Hospitalization)
  Sender: FDA-Public Use
  Company Number: CN-ELI_LILLY_AND_COMPANY-CN201702006046

PATIENT
  Age: 68 Year
  Sex: Female
  Weight: 55 kg

DRUGS (5)
  1. HUMALOG MIX75/25 [Suspect]
     Active Substance: INSULIN LISPRO
     Indication: DIABETES MELLITUS
     Dosage: UNK, UNKNOWN
     Route: 058
     Dates: start: 2014
  2. HUMULIN 70/30 [Suspect]
     Active Substance: INSULIN HUMAN
     Dosage: 3 U, QD AT NOON
     Route: 058
     Dates: start: 2015, end: 20170212
  3. HUMALOG MIX50/50 [Suspect]
     Active Substance: INSULIN LISPRO
     Indication: DIABETES MELLITUS
     Dosage: UNK, UNKNOWN
     Route: 058
     Dates: start: 2013
  4. HUMULIN 70/30 [Suspect]
     Active Substance: INSULIN HUMAN
     Indication: DIABETES MELLITUS
     Dosage: 9 U, EACH MORNING
     Route: 058
     Dates: start: 2015, end: 20170212
  5. HUMULIN 70/30 [Suspect]
     Active Substance: INSULIN HUMAN
     Dosage: 9 U, EACH EVENING
     Route: 058
     Dates: start: 2015, end: 20170212

REACTIONS (7)
  - Memory impairment [Unknown]
  - Tongue discolouration [Unknown]
  - Blood glucose decreased [Unknown]
  - Cardiac disorder [Unknown]
  - Hypoaesthesia oral [Unknown]
  - Cardiac disorder [Unknown]
  - Breath odour [Unknown]

NARRATIVE: CASE EVENT DATE: 2013
